FAERS Safety Report 5591942-2 (Version None)
Quarter: 2008Q1

REPORT INFORMATION
  Report Type: 
  Country: None (occurrence: None)
  Receive Date: 20080115
  Receipt Date: 20080108
  Transmission Date: 20080703
  Serious: Yes (Hospitalization)
  Sender: FDA-Public Use
  Company Number: FR-ELI_LILLY_AND_COMPANY-FR200801001301

PATIENT
  Sex: Male

DRUGS (1)
  1. CIALIS [Suspect]
     Indication: ERECTILE DYSFUNCTION
     Dosage: 1 D/F, UNK
     Route: 048
     Dates: start: 20071123, end: 20071123

REACTIONS (4)
  - ANGINA PECTORIS [None]
  - ATRIOVENTRICULAR BLOCK SECOND DEGREE [None]
  - CHILLS [None]
  - DYSPNOEA [None]
